FAERS Safety Report 5283336-4 (Version None)
Quarter: 2007Q1

REPORT INFORMATION
  Report Type: 
  Country: None (occurrence: None)
  Receive Date: 20070328
  Receipt Date: 20070328
  Transmission Date: 20070707
  Serious: Yes (Other)
  Sender: FDA-Public Use
  Company Number: None

PATIENT
  Sex: Male
  Weight: 8.4 kg

DRUGS (4)
  1. APOTEX CEFTRIAXONE 1GM + 2GM VIALS [Suspect]
     Indication: PYELOCYSTITIS
     Dosage: 840MG  Q24H  IV
     Route: 042
     Dates: start: 20070321
  2. APOTEX CEFTRIAXONE 1 GM + 2 GM VIALS [Suspect]
     Indication: PYELOCYSTITIS
  3. HEPARIN [Concomitant]
  4. SODIUM CHLORIDE [Concomitant]

REACTIONS (3)
  - CRYING [None]
  - RASH ERYTHEMATOUS [None]
  - SCREAMING [None]
